FAERS Safety Report 17570794 (Version 2)
Quarter: 2020Q1

REPORT INFORMATION
  Report Type: Report from Study
  Country: NL (occurrence: NL)
  Receive Date: 20200323
  Receipt Date: 20200326
  Transmission Date: 20200409
  Serious: Yes (Disabling)
  Sender: FDA-Public Use
  Company Number: NL-ROCHE-2568395

PATIENT
  Age: 75 Year
  Sex: Male

DRUGS (3)
  1. OBINUTUZUMAB. [Suspect]
     Active Substance: OBINUTUZUMAB
     Indication: LYMPHOCYTIC LEUKAEMIA
     Dosage: CYCLE 1 AT DAY 8 AND DAY 15
     Route: 042
     Dates: start: 20180206, end: 20181003
  2. VENETOCLAX. [Suspect]
     Active Substance: VENETOCLAX
     Indication: LYMPHOCYTIC LEUKAEMIA
     Dosage: DAILY DURING CYCLE 2, DAY 15-21
     Route: 048
     Dates: start: 20190627, end: 20190804
  3. FILGRASTIM [Concomitant]
     Active Substance: FILGRASTIM
     Indication: NEUTROPENIA
     Route: 065
     Dates: start: 20190110, end: 20190716

REACTIONS (1)
  - Laryngitis [Recovered/Resolved]

NARRATIVE: CASE EVENT DATE: 20190717
